FAERS Safety Report 6468527-9 (Version None)
Quarter: 2009Q4

REPORT INFORMATION
  Report Type: 
  Country: None (occurrence: None)
  Receive Date: 20091130
  Receipt Date: 20091110
  Transmission Date: 20100525
  Serious: Yes (Hospitalization)
  Sender: FDA-Public Use
  Company Number: 1-20698366

PATIENT
  Age: 16 Year
  Sex: Male

DRUGS (2)
  1. FLO-PRED [Suspect]
     Indication: ERYTHEMA MULTIFORME
     Dosage: ORAL
     Route: 048
     Dates: start: 20060501, end: 20060101
  2. VALACYCLOVIR [Suspect]
     Indication: ERYTHEMA MULTIFORME
     Dosage: 1000 MG DAILY, ORAL
     Route: 048
     Dates: start: 20060501, end: 20061001

REACTIONS (10)
  - CONDITION AGGRAVATED [None]
  - DYSPHAGIA [None]
  - EPIDERMAL NECROSIS [None]
  - ERYTHEMA MULTIFORME [None]
  - FATIGUE [None]
  - LYMPHOCYTE TRANSFORMATION TEST POSITIVE [None]
  - MOUTH ULCERATION [None]
  - ORAL HERPES [None]
  - PYREXIA [None]
  - SCROTAL ULCER [None]
